FAERS Safety Report 5383843-X (Version None)
Quarter: 2007Q3

REPORT INFORMATION
  Report Type: 
  Country: None (occurrence: None)
  Receive Date: 20070706
  Receipt Date: 20070628
  Transmission Date: 20080115
  Serious: Yes (Death)
  Sender: FDA-Public Use
  Company Number: S07-USA-02804-01

PATIENT
  Age: 74 Year
  Sex: Male

DRUGS (2)
  1. LEXAPRO [Suspect]
     Indication: ANXIETY
     Dosage: 10 MG QD; PO
     Route: 048
     Dates: start: 20050501, end: 20050624
  2. LEXAPRO [Suspect]
     Indication: DEPRESSION
     Dosage: 10 MG QD; PO
     Route: 048
     Dates: start: 20050501, end: 20050624

REACTIONS (6)
  - AGITATION [None]
  - ANXIETY [None]
  - ASPHYXIA [None]
  - COMPLETED SUICIDE [None]
  - DEPRESSED MOOD [None]
  - HOSTILITY [None]
